FAERS Safety Report 5940000-3 (Version None)
Quarter: 2008Q4

REPORT INFORMATION
  Report Type: 
  Country: None (occurrence: None)
  Receive Date: 20081104
  Receipt Date: 20081030
  Transmission Date: 20090506
  Serious: Yes (Death)
  Sender: FDA-Public Use
  Company Number: JP-NOVOPROD-280812

PATIENT
  Age: 19 Year
  Sex: Male

DRUGS (2)
  1. NOVOSEVEN [Suspect]
     Indication: ACQUIRED HAEMOPHILIA
     Dosage: 2.4 MG, UNK
     Route: 042
     Dates: start: 20081029
  2. NOVOSEVEN [Suspect]
     Dosage: 1.2 MG, UNK
     Dates: start: 20081029

REACTIONS (2)
  - CARDIAC FAILURE [None]
  - HAEMORRHAGE [None]
